FAERS Safety Report 20444345 (Version 1)
Quarter: 2022Q1

REPORT INFORMATION
  Report Type: Spontaneous
  Country: RO (occurrence: RO)
  Receive Date: 20220208
  Receipt Date: 20220208
  Transmission Date: 20220424
  Serious: Yes (Death, Life-Threatening, Hospitalization, Other)
  Sender: FDA-Public Use
  Company Number: RO-SA-SAC20220205000347

PATIENT
  Age: 30 Year

DRUGS (2)
  1. CAPLACIZUMAB [Suspect]
     Active Substance: CAPLACIZUMAB
     Dosage: 10 MG
     Route: 042
     Dates: start: 20220131, end: 20220131
  2. CAPLACIZUMAB [Suspect]
     Active Substance: CAPLACIZUMAB
     Dosage: 10 MG
     Route: 058
     Dates: start: 20220131

REACTIONS (2)
  - Brain oedema [Fatal]
  - Organ failure [Fatal]

NARRATIVE: CASE EVENT DATE: 20220101
